FAERS Safety Report 6781651-6 (Version None)
Quarter: 2010Q2

REPORT INFORMATION
  Report Type: 
  Country: None (occurrence: None)
  Receive Date: 20100617
  Receipt Date: 20100617
  Transmission Date: 20101027
  Serious: No
  Sender: FDA-Public Use
  Company Number: None

PATIENT
  Sex: Female

DRUGS (2)
  1. OXYCODONE HCL [Suspect]
     Indication: BACK PAIN
     Dosage: 10 MG EVERY 12 HOURS PO
     Route: 048
     Dates: start: 20100527, end: 20100529
  2. OXYCODONE HCL [Suspect]
     Indication: BACK PAIN
     Dosage: 10 MG EVERY 12 HOURS PO
     Route: 048
     Dates: start: 20100527, end: 20100529

REACTIONS (3)
  - NO THERAPEUTIC RESPONSE [None]
  - PRODUCT COUNTERFEIT [None]
  - PRODUCT QUALITY ISSUE [None]
